FAERS Safety Report 21904800 (Version 1)
Quarter: 2023Q1

REPORT INFORMATION
  Report Type: Spontaneous
  Country: ES (occurrence: ES)
  Receive Date: 20230124
  Receipt Date: 20230124
  Transmission Date: 20230417
  Serious: Yes (Other)
  Sender: FDA-Public Use
  Company Number: None

PATIENT
  Age: 60 Year
  Sex: Female

DRUGS (2)
  1. DOXYCYCLINE HYCLATE [Suspect]
     Active Substance: DOXYCYCLINE HYCLATE
     Indication: Pneumothorax
     Dosage: 300 MG, SINGLE
     Route: 034
     Dates: start: 20220408, end: 20220408
  2. LIDOCAINE [Suspect]
     Active Substance: LIDOCAINE
     Indication: Pneumothorax
     Dosage: 200 MG, SINGLE
     Route: 034
     Dates: start: 20220408, end: 20220408

REACTIONS (4)
  - Rash maculo-papular [Recovered/Resolved]
  - Hypertension [Recovered/Resolved]
  - Chest pain [Recovered/Resolved]
  - Off label use [Unknown]

NARRATIVE: CASE EVENT DATE: 20220408
